FAERS Safety Report 6274083-0 (Version None)
Quarter: 2009Q3

REPORT INFORMATION
  Report Type: 
  Country: None (occurrence: None)
  Receive Date: 20090720
  Receipt Date: 20090706
  Transmission Date: 20100115
  Serious: Yes (Other)
  Sender: FDA-Public Use
  Company Number: PHHY2009RU28233

PATIENT
  Age: 58 Year
  Sex: Female

DRUGS (3)
  1. MIACALCIN [Suspect]
     Dosage: 200 EU/DAY
     Route: 045
     Dates: start: 20090401
  2. ALPHA D3 [Concomitant]
     Dosage: 25 MG/DAY
  3. LEVOTHYROXINE SODIUM [Concomitant]
     Dosage: 125 MKG/DAY

REACTIONS (3)
  - ASTHENIA [None]
  - BLOOD CALCIUM DECREASED [None]
  - PAIN IN EXTREMITY [None]
